FAERS Safety Report 25258771 (Version 2)
Quarter: 2025Q2

REPORT INFORMATION
  Report Type: Report from Study
  Country: GB (occurrence: GB)
  Receive Date: 20250501
  Receipt Date: 20250505
  Transmission Date: 20250717
  Serious: Yes (Hospitalization)
  Sender: ABBVIE
  Company Number: GB-ABBVIE-6257120

PATIENT
  Sex: Female

DRUGS (1)
  1. FOSCARBIDOPA\FOSLEVODOPA [Suspect]
     Active Substance: FOSCARBIDOPA\FOSLEVODOPA
     Indication: Parkinson^s disease
     Route: 058

REACTIONS (6)
  - Urinary tract infection [Unknown]
  - Parkinson^s disease [Unknown]
  - Constipation [Unknown]
  - Diarrhoea [Unknown]
  - Dizziness [Unknown]
  - Balance disorder [Unknown]
